FAERS Safety Report 10408869 (Version 1)
Quarter: 2014Q3

REPORT INFORMATION
  Report Type: Spontaneous
  Country: IT (occurrence: None)
  Receive Date: 20140822
  Receipt Date: 20140822
  Transmission Date: 20150326
  Serious: Yes (Hospitalization)
  Sender: FDA-Public Use
  Company Number: AUR-APL-2014-08680

PATIENT
  Age: 57 Year
  Sex: Male

DRUGS (3)
  1. LAMOTRIGINE (LAMOTRIGINE) [Concomitant]
     Active Substance: LAMOTRIGINE
  2. DEPAKENE [Concomitant]
     Active Substance: VALPROIC ACID
  3. AMOXICILLIN (AMOXICILLIN) [Suspect]
     Active Substance: AMOXICILLIN
     Indication: PRODUCT USED FOR UNKNOWN INDICATION
     Dosage: 1 DF DOSAGE FORM TOTAL, UNK, ORAL
     Route: 048
     Dates: start: 20140517, end: 20140517

REACTIONS (2)
  - Pyrexia [None]
  - Rash morbilliform [None]

NARRATIVE: CASE EVENT DATE: 20140517
